FAERS Safety Report 6731342-2 (Version None)
Quarter: 2010Q2

REPORT INFORMATION
  Report Type: 
  Country: None (occurrence: None)
  Receive Date: 20100517
  Receipt Date: 20100517
  Transmission Date: 20101027
  Serious: Yes (Hospitalization)
  Sender: FDA-Public Use
  Company Number: None

PATIENT
  Sex: Female
  Weight: 52.1637 kg

DRUGS (10)
  1. EXJADE [Suspect]
     Indication: IRON OVERLOAD
     Dosage: 1000MG QAM PO
     Route: 048
     Dates: start: 20100208, end: 20100211
  2. JANUMET [Concomitant]
  3. AMBIEN [Concomitant]
  4. LOPID [Concomitant]
  5. LURICA [Concomitant]
  6. SYNTHROID [Concomitant]
  7. METFORMIN HYDROCHLORIDE [Concomitant]
  8. LISINOPRIL [Concomitant]
  9. ATENOLOL [Concomitant]
  10. CALCIUM [Concomitant]

REACTIONS (1)
  - GASTROINTESTINAL HAEMORRHAGE [None]
